FAERS Safety Report 25001558 (Version 1)
Quarter: 2025Q1

REPORT INFORMATION
  Report Type: Spontaneous
  Country: CN (occurrence: CN)
  Receive Date: 20250223
  Receipt Date: 20250223
  Transmission Date: 20250409
  Serious: Yes (Other)
  Sender: ABBVIE
  Company Number: CN-ABBVIE-6145245

PATIENT
  Age: 76 Year
  Sex: Male
  Weight: 83 kg

DRUGS (2)
  1. VENETOCLAX [Suspect]
     Active Substance: VENETOCLAX
     Indication: Chemotherapy
     Route: 048
     Dates: start: 20250128, end: 20250220
  2. AZACITIDINE [Suspect]
     Active Substance: AZACITIDINE
     Indication: Chemotherapy
     Route: 058
     Dates: start: 20250128, end: 20250203

REACTIONS (1)
  - Myelosuppression [Recovering/Resolving]

NARRATIVE: CASE EVENT DATE: 20250217
